FAERS Safety Report 9254277 (Version 1)
Quarter: 2013Q2

REPORT INFORMATION
  Report Type: Report from Study
  Country: US (occurrence: US)
  Receive Date: 20130425
  Receipt Date: 20130425
  Transmission Date: 20140414
  Serious: No
  Sender: FDA-Public Use
  Company Number: PHEH2013US008965

PATIENT
  Age: 57 Year
  Sex: Female
  Weight: 59.86 kg

DRUGS (6)
  1. TASIGNA [Suspect]
     Indication: CHRONIC MYELOID LEUKAEMIA
     Dosage: 2 DF, BID
     Route: 048
  2. TOPROL XL [Concomitant]
     Dosage: 50 MG, UNK
     Route: 048
  3. VERAPAMIL [Concomitant]
     Dosage: 100 MG, UNK
     Route: 048
  4. CLARITIN [Concomitant]
     Dosage: 10 MG, UNK
     Route: 048
  5. CALCIUM [Concomitant]
     Dosage: 500 MG, UNK
     Route: 048
  6. MULTI-VIT [Concomitant]
     Route: 048

REACTIONS (2)
  - Night sweats [Unknown]
  - Constipation [Unknown]
